FAERS Safety Report 15576788 (Version 15)
Quarter: 2019Q3

REPORT INFORMATION
  Report Type: Report from Study
  Country: US (occurrence: US)
  Receive Date: 20181101
  Receipt Date: 20190808
  Transmission Date: 20191004
  Serious: Yes (Hospitalization)
  Sender: FDA-Public Use
  Company Number: US-ACTELION-A-NJ2018-180811

PATIENT
  Age: 13 Year
  Sex: Female

DRUGS (3)
  1. REMODULIN [Suspect]
     Active Substance: TREPROSTINIL
     Dosage: UNK
     Route: 058
     Dates: start: 20181019
  2. REMODULIN [Suspect]
     Active Substance: TREPROSTINIL
     Indication: PRODUCT USED FOR UNKNOWN INDICATION
     Dosage: 9 NG/KG, PER MIN
     Route: 058
     Dates: start: 20181021
  3. OPSUMIT [Suspect]
     Active Substance: MACITENTAN
     Indication: PULMONARY HYPERTENSION
     Dosage: 10 MG, QD
     Route: 048
     Dates: start: 20181006

REACTIONS (17)
  - Infusion site erythema [Unknown]
  - Gastrointestinal disorder [Recovering/Resolving]
  - Contraindication to surgery [Unknown]
  - Headache [Unknown]
  - Aspartate aminotransferase increased [Recovering/Resolving]
  - Streptococcal infection [Unknown]
  - Pneumonia [Unknown]
  - Pyrexia [Unknown]
  - Restlessness [Not Recovered/Not Resolved]
  - Weight decreased [Unknown]
  - Liver function test increased [Recovering/Resolving]
  - Alanine aminotransferase increased [Recovering/Resolving]
  - Oxygen consumption [Unknown]
  - Nausea [Unknown]
  - Decreased appetite [Not Recovered/Not Resolved]
  - Respiratory tract infection [Unknown]
  - Blood pressure decreased [Recovered/Resolved]

NARRATIVE: CASE EVENT DATE: 20181019
